FAERS Safety Report 15276369 (Version 1)
Quarter: 2018Q3

REPORT INFORMATION
  Report Type: Spontaneous
  Country: US (occurrence: US)
  Receive Date: 20180814
  Receipt Date: 20180814
  Transmission Date: 20181010
  Serious: No
  Sender: FDA-Public Use
  Company Number: US-MYLANLABS-2018M1060479

PATIENT
  Age: 62 Year
  Sex: Female
  Weight: 58.96 kg

DRUGS (1)
  1. MIDODRINE HYDROCHLORIDE TABLETS USP [Suspect]
     Active Substance: MIDODRINE HYDROCHLORIDE
     Indication: HYPOTENSION
     Dosage: 10 MG, TID
     Route: 048
     Dates: start: 20180706

REACTIONS (2)
  - Pruritus [Not Recovered/Not Resolved]
  - Lice infestation [Not Recovered/Not Resolved]

NARRATIVE: CASE EVENT DATE: 20180706
